FAERS Safety Report 9153987 (Version 1)
Quarter: 2013Q1

REPORT INFORMATION
  Report Type: Report from Study
  Country: FR (occurrence: FR)
  Receive Date: 20130311
  Receipt Date: 20130311
  Transmission Date: 20140127
  Serious: Yes (Other)
  Sender: FDA-Public Use
  Company Number: FR-GENZYME-CAMP-1002778

PATIENT
  Age: 70 Year
  Sex: Female

DRUGS (1)
  1. CAMPATH [Suspect]
     Indication: CHRONIC LYMPHOCYTIC LEUKAEMIA
     Dosage: 30 MG, 3X/W
     Route: 065
     Dates: end: 20120928

REACTIONS (3)
  - Disease progression [Unknown]
  - Cytomegalovirus infection [Unknown]
  - Pyrexia [Unknown]
